FAERS Safety Report 20380243 (Version 1)
Quarter: 2022Q1

REPORT INFORMATION
  Report Type: Other
  Country: PL (occurrence: PL)
  Receive Date: 20220126
  Receipt Date: 20220126
  Transmission Date: 20220423
  Serious: Yes (Other)
  Sender: FDA-Public Use
  Company Number: PL-NOVEN PHARMACEUTICALS, INC.-2020-NOV-PL009429

PATIENT
  Age: 75 Year
  Sex: Female

DRUGS (2)
  1. ESTRADIOL\NORETHINDRONE ACETATE [Suspect]
     Active Substance: ESTRADIOL\NORETHINDRONE ACETATE
     Indication: Hormone replacement therapy
     Dosage: HALF OF THE PLASTER, UNK
     Route: 062
  2. NEBISPES [Concomitant]
     Indication: Product used for unknown indication

REACTIONS (5)
  - Poor peripheral circulation [Unknown]
  - Unevaluable event [Unknown]
  - Bedridden [Unknown]
  - Asthenia [Unknown]
  - Off label use [Unknown]
